FAERS Safety Report 8426380-8 (Version None)
Quarter: 2012Q2

REPORT INFORMATION
  Report Type: 
  Country: None (occurrence: None)
  Receive Date: 20120611
  Receipt Date: 20120606
  Transmission Date: 20120825
  Serious: No
  Sender: FDA-Public Use
  Company Number: US-PFIZER INC-2006038956

PATIENT
  Sex: Male
  Weight: 72.562 kg

DRUGS (45)
  1. LYRICA [Suspect]
     Indication: MUSCULOSKELETAL STIFFNESS
     Dosage: 100 MG, UNK
     Route: 048
  2. LYRICA [Suspect]
     Dosage: 75 MG, 1X/DAY
     Route: 048
  3. NEURONTIN [Suspect]
     Dosage: 300 MG, 2X/DAY
     Route: 048
     Dates: start: 20120301
  4. ACIPHEX [Concomitant]
     Route: 065
  5. OMEPRAZOLE [Concomitant]
     Indication: HYPERCHLORHYDRIA
     Dosage: 40 MG, 1X/DAY
  6. CETIRIZINE HYDROCHLORIDE [Concomitant]
     Indication: PRURITUS
     Dosage: UNK
  7. HYDROMORPHONE [Concomitant]
     Dosage: 8 MG, UNK
  8. LYRICA [Suspect]
     Indication: MUSCLE SPASTICITY
     Dosage: 75 MG, 2X/DAY
     Route: 048
     Dates: start: 20060314
  9. NEURONTIN [Suspect]
     Indication: GAIT DISTURBANCE
     Dosage: UNK
  10. GABAPENTIN [Suspect]
     Dosage: UNK
     Route: 048
  11. BENTYL [Concomitant]
     Route: 065
  12. TRIAMTERENE AND HYDROCHLOROTHIAZIDE [Concomitant]
     Route: 065
  13. FENOFIBRATE [Concomitant]
     Indication: BLOOD CHOLESTEROL ABNORMAL
     Dosage: 150 MG, DAILY
  14. ASPIRIN [Concomitant]
     Indication: ANTICOAGULANT THERAPY
     Dosage: 325 MG, UNK
  15. FENOFIBRATE [Concomitant]
     Dosage: 10 MG, 1X/DAY
     Route: 048
  16. IRON [Concomitant]
     Indication: ANAEMIA
     Dosage: 25 MG, DAILY
  17. NORVASC [Concomitant]
     Dosage: UNK
  18. ATORVASTATIN [Concomitant]
     Dosage: 10 MG, 1X/DAY
  19. LYRICA [Suspect]
     Indication: GAIT DISTURBANCE
     Dosage: 75 MG, UNK
     Route: 048
  20. GABAPENTIN [Suspect]
     Dosage: 300 MG, 3X/DAY
     Route: 048
  21. BETHANECHOL [Concomitant]
     Route: 065
  22. CYMBALTA [Suspect]
     Indication: GAIT DISTURBANCE
     Dosage: UNK
  23. NAPROXEN (ALEVE) [Concomitant]
     Route: 065
  24. TAMSULOSIN HYDROCHLORIDE [Concomitant]
     Indication: BENIGN PROSTATIC HYPERPLASIA
     Dosage: 0.4 MG, 2X/DAY
  25. OMEPRAZOLE [Concomitant]
     Indication: GASTROOESOPHAGEAL REFLUX DISEASE
     Dosage: 40 MG, DAILY
  26. LYRICA [Suspect]
     Dosage: UNK
     Route: 048
  27. HYOSCYAMINE [Concomitant]
     Route: 065
  28. TROSPIUM [Concomitant]
     Indication: BLADDER DISORDER
     Dosage: 20 MG, 2X/DAY
     Route: 048
  29. IBUPROFEN [Concomitant]
     Indication: PAIN
     Dosage: 200 MG, AS NEEDED
  30. ATORVASTATIN CALCIUM [Concomitant]
     Indication: BLOOD CHOLESTEROL ABNORMAL
     Dosage: 40 MG, DAILY
  31. LIPITOR [Concomitant]
     Route: 065
  32. PHENAZOPYRIDINE HCL TAB [Concomitant]
     Route: 065
  33. LISINOPRIL [Concomitant]
     Route: 065
  34. PERCOGESIC [Concomitant]
     Route: 065
  35. IBUPROFEN (ADVIL) [Concomitant]
     Route: 065
  36. HYDROMORPHONE HYDROCHLORIDE [Concomitant]
     Dosage: 8 MG, 4X/DAY
  37. AMLODIPINE BESILATE [Concomitant]
     Indication: HYPERTENSION
     Dosage: 10 MG, UNK
     Route: 048
  38. CHROMAGEN FORTE [Concomitant]
     Route: 065
  39. ULTRACET [Concomitant]
     Route: 065
  40. NABUMETONE [Concomitant]
     Route: 065
  41. FLOMAX [Concomitant]
     Route: 065
  42. ACETAMINOPHEN [Concomitant]
     Route: 065
  43. HYDROMORPHONE HYDROCHLORIDE [Concomitant]
     Indication: PAIN
     Dosage: 4 MG, 4X/DAY
  44. HYDROMORPHONE HYDROCHLORIDE [Concomitant]
     Dosage: 16 MG, 4X/DAY
  45. FLOMAX [Concomitant]
     Dosage: 0.4 MG, 2X/DAY
     Route: 048

REACTIONS (7)
  - BLOOD IRON DECREASED [None]
  - PAIN [None]
  - ALBUMIN GLOBULIN RATIO INCREASED [None]
  - GAIT DISTURBANCE [None]
  - DRUG LEVEL INCREASED [None]
  - DRUG INEFFECTIVE [None]
  - VISION BLURRED [None]
